FAERS Safety Report 17938990 (Version 1)
Quarter: 2020Q2

REPORT INFORMATION
  Report Type: Other
  Country: FR (occurrence: FR)
  Receive Date: 20200625
  Receipt Date: 20200625
  Transmission Date: 20200714
  Serious: Yes (Life-Threatening)
  Sender: FDA-Public Use
  Company Number: FR-CELLTRION INC.-2020FR023606

PATIENT

DRUGS (1)
  1. TRUXIMA [Suspect]
     Active Substance: RITUXIMAB-ABBS
     Indication: GRANULOMA SKIN
     Dosage: 100 MG PER CYLCE
     Route: 058
     Dates: start: 20190325, end: 20190920

REACTIONS (4)
  - Atrial flutter [Not Recovered/Not Resolved]
  - Off label use [Unknown]
  - Cardiac flutter [Not Recovered/Not Resolved]
  - Product use issue [Unknown]

NARRATIVE: CASE EVENT DATE: 20190922
